FAERS Safety Report 9284431 (Version 2)
Quarter: 2013Q2

REPORT INFORMATION
  Report Type: Spontaneous
  Country: US (occurrence: US)
  Receive Date: 20130510
  Receipt Date: 20130603
  Transmission Date: 20140414
  Serious: Yes (Hospitalization)
  Sender: FDA-Public Use
  Company Number: US-B.I. PHARMACEUTICALS,INC./RIDGEFIELD-2013-BI-13035BP

PATIENT
  Age: 68 Year
  Sex: Female
  Weight: 104.33 kg

DRUGS (18)
  1. PRADAXA [Suspect]
     Indication: ANTICOAGULANT THERAPY
     Dosage: 150 MG
     Route: 048
     Dates: start: 20110516, end: 20120201
  2. BYSTOLIC [Concomitant]
     Dosage: 20 MG
     Route: 048
  3. COLACE [Concomitant]
     Route: 048
  4. LANTUS [Concomitant]
     Route: 058
  5. LIPITOR [Concomitant]
     Dosage: 40 MG
     Route: 048
  6. SPIRIVA [Concomitant]
     Dosage: 18 MCG
  7. SYNTHROID [Concomitant]
     Dosage: 125 MCG
     Route: 048
  8. TOPICORT [Concomitant]
  9. TYLENOL [Concomitant]
     Route: 048
  10. ALBUTEROL [Concomitant]
     Route: 048
  11. XANAX [Concomitant]
     Route: 048
  12. FOLIC ACID [Concomitant]
     Dosage: 1 MG
     Route: 048
  13. LASIX [Concomitant]
     Dosage: 40 MG
     Route: 048
  14. HYDROXYZINE [Concomitant]
     Dosage: 75 MG
     Route: 048
  15. METHOTREXATE [Concomitant]
     Route: 048
  16. K-DUR [Concomitant]
     Dosage: 40 MEQ
     Route: 048
  17. RYTHMOL [Concomitant]
     Dosage: 650 MG
     Route: 048
  18. GANCICLOVIR [Concomitant]

REACTIONS (5)
  - Anaemia [Unknown]
  - Pleural effusion [Unknown]
  - Ulcer haemorrhage [Unknown]
  - Epistaxis [Unknown]
  - Myocardial infarction [Unknown]
